FAERS Safety Report 4517425-6 (Version None)
Quarter: 2004Q4

REPORT INFORMATION
  Report Type: 
  Country: None (occurrence: None)
  Receive Date: 20041022
  Receipt Date: 20040910
  Transmission Date: 20050328
  Serious: Yes (Other)
  Sender: FDA-Public Use
  Company Number: 2004064243

PATIENT
  Sex: Female

DRUGS (2)
  1. RELPAX [Suspect]
     Indication: MIGRAINE
  2. ZOLMITRIPTAN (ZOLMITRIPTAN) [Concomitant]

REACTIONS (1)
  - VOMITING [None]
